FAERS Safety Report 4618564-1 (Version None)
Quarter: 2005Q1

REPORT INFORMATION
  Report Type: 
  Country: None (occurrence: None)
  Receive Date: 20050324
  Receipt Date: 20050307
  Transmission Date: 20050727
  Serious: Yes (Hospitalization, Other)
  Sender: FDA-Public Use
  Company Number: USA050392543

PATIENT
  Age: 65 Year
  Sex: Female

DRUGS (1)
  1. EVISTA [Suspect]
     Indication: OSTEOPOROSIS
     Dates: start: 20040601

REACTIONS (5)
  - BONE DISORDER [None]
  - FALL [None]
  - HIP FRACTURE [None]
  - LOWER LIMB DEFORMITY [None]
  - RADIUS FRACTURE [None]
